FAERS Safety Report 25796772 (Version 1)
Quarter: 2025Q3

REPORT INFORMATION
  Report Type: Spontaneous
  Country: US (occurrence: US)
  Receive Date: 20250912
  Receipt Date: 20250912
  Transmission Date: 20251021
  Serious: No
  Sender: ANI
  Company Number: US-ANIPHARMA-2025-US-018028

PATIENT
  Age: 39 Year
  Sex: Male

DRUGS (7)
  1. CORTICOTROPIN [Suspect]
     Active Substance: CORTICOTROPIN
     Indication: Gout
     Route: 058
  2. ALLOPURINOL [Concomitant]
     Active Substance: ALLOPURINOL
  3. COLCHICINE [Concomitant]
     Active Substance: COLCHICINE
  4. PREDNISONE [Concomitant]
     Active Substance: PREDNISONE
  5. TYLENOL 8 HR ARTHRITIS PAIN [Concomitant]
     Active Substance: ACETAMINOPHEN
  6. IBUPROFEN [Concomitant]
     Active Substance: IBUPROFEN
  7. HERBALS\TURMERIC [Concomitant]
     Active Substance: HERBALS\TURMERIC

REACTIONS (2)
  - Surgery [Unknown]
  - Product administration interrupted [Not Recovered/Not Resolved]

NARRATIVE: CASE EVENT DATE: 20250101
